FAERS Safety Report 7948850-9 (Version None)
Quarter: 2011Q4

REPORT INFORMATION
  Report Type: 
  Country: None (occurrence: None)
  Receive Date: 20111130
  Receipt Date: 20111118
  Transmission Date: 20120403
  Serious: Yes (Other)
  Sender: FDA-Public Use
  Company Number: PHHY2010MX74183

PATIENT
  Sex: Male

DRUGS (2)
  1. RITALIN LA [Suspect]
     Indication: ATTENTION DEFICIT/HYPERACTIVITY DISORDER
     Dosage: 20 MG, QD
     Route: 048
     Dates: start: 20100703, end: 20101030
  2. VALPROIC ACID [Concomitant]
     Dosage: UNK UKN, UNK

REACTIONS (9)
  - NAUSEA [None]
  - ABDOMINAL PAIN [None]
  - GAZE PALSY [None]
  - DIPLOPIA [None]
  - VISION BLURRED [None]
  - METAMORPHOPSIA [None]
  - ANXIETY [None]
  - BLINDNESS TRANSIENT [None]
  - ILLUSION [None]
